FAERS Safety Report 8522680-1 (Version None)
Quarter: 2012Q3

REPORT INFORMATION
  Report Type: 
  Country: None (occurrence: None)
  Receive Date: 20120719
  Receipt Date: 20120425
  Transmission Date: 20120928
  Serious: Yes (Other)
  Sender: FDA-Public Use
  Company Number: CA-GLAXOSMITHKLINE-A0975036A

PATIENT
  Age: 26 Year
  Sex: Male
  Weight: 75 kg

DRUGS (1)
  1. AVODART [Suspect]
     Indication: ALOPECIA
     Dosage: 1CAP PER DAY
     Route: 048
     Dates: start: 20090601, end: 20110601

REACTIONS (9)
  - FATIGUE [None]
  - EJACULATION DISORDER [None]
  - BREAST TENDERNESS [None]
  - BREAST ENLARGEMENT [None]
  - LIBIDO DECREASED [None]
  - ASTHENIA [None]
  - ERECTILE DYSFUNCTION [None]
  - BREAST DISORDER MALE [None]
  - OFF LABEL USE [None]
